FAERS Safety Report 19056056 (Version 1)
Quarter: 2021Q1

REPORT INFORMATION
  Report Type: Spontaneous
  Country: US (occurrence: US)
  Receive Date: 20210324
  Receipt Date: 20210324
  Transmission Date: 20210420
  Serious: No
  Sender: FDA-Public Use
  Company Number: US-JNJFOC-20210330036

PATIENT
  Age: 65 Year
  Sex: Female

DRUGS (10)
  1. TYLENOL [Suspect]
     Active Substance: ACETAMINOPHEN
     Indication: DRY MOUTH
  2. TYLENOL [Suspect]
     Active Substance: ACETAMINOPHEN
     Indication: NAUSEA
  3. TYLENOL [Suspect]
     Active Substance: ACETAMINOPHEN
     Indication: HYPERTENSION
  4. TYLENOL [Suspect]
     Active Substance: ACETAMINOPHEN
     Indication: DYSPEPSIA
  5. TYLENOL [Suspect]
     Active Substance: ACETAMINOPHEN
     Indication: CHEST PAIN
  6. COVID?19 VACCINE [Concomitant]
     Indication: PRODUCT USED FOR UNKNOWN INDICATION
     Route: 065
     Dates: start: 20210201
  7. TYLENOL [Suspect]
     Active Substance: ACETAMINOPHEN
     Indication: DYSGEUSIA
  8. TYLENOL [Suspect]
     Active Substance: ACETAMINOPHEN
     Indication: MUSCULAR WEAKNESS
  9. TYLENOL [Suspect]
     Active Substance: ACETAMINOPHEN
     Indication: ARTHRALGIA
     Route: 065
     Dates: start: 202102
  10. TYLENOL [Suspect]
     Active Substance: ACETAMINOPHEN
     Indication: PARAESTHESIA

REACTIONS (1)
  - Product use in unapproved indication [Unknown]

NARRATIVE: CASE EVENT DATE: 202102
